FAERS Safety Report 6383435-X (Version None)
Quarter: 2009Q4

REPORT INFORMATION
  Report Type: 
  Country: None (occurrence: None)
  Receive Date: 20091001
  Receipt Date: 20090928
  Transmission Date: 20100525
  Serious: Yes (Life-Threatening, Hospitalization, Other)
  Sender: FDA-Public Use
  Company Number: DE-WYE-G04526409

PATIENT
  Sex: Female
  Weight: 52 kg

DRUGS (21)
  1. TYGACIL [Suspect]
     Route: 042
     Dates: start: 20090826, end: 20090826
  2. TYGACIL [Suspect]
     Route: 042
     Dates: start: 20090827, end: 20090829
  3. VORICONAZOLE [Suspect]
     Indication: ASPERGILLOSIS
     Route: 042
     Dates: start: 20090825, end: 20090829
  4. AMPHOTERICIN B [Concomitant]
     Dosage: UNKNOWN
     Dates: start: 20090802
  5. L-THYROXIN [Concomitant]
     Dosage: UNKNOWN
     Dates: start: 20090802
  6. TAVANIC [Concomitant]
     Dosage: UNKNOWN
     Dates: start: 20090802, end: 20090828
  7. RANITIC [Concomitant]
     Dosage: UNKNOWN
     Dates: start: 20090825, end: 20090830
  8. HEPARIN [Concomitant]
     Dosage: UNKNOWN
     Dates: start: 20090808, end: 20090826
  9. PANTOPRAZOLE SODIUM [Concomitant]
     Dosage: UNKNOWN
     Dates: end: 20090824
  10. POTASSIUM CHLORIDE [Concomitant]
     Dosage: UNKNOWN
     Dates: start: 20090825, end: 20090825
  11. MERONEM [Concomitant]
     Dosage: UNKNOWN
     Dates: end: 20090826
  12. TARGOCID [Concomitant]
     Dosage: UNKNOWN
     Dates: end: 20090826
  13. TARGOCID [Concomitant]
     Dosage: UNKNOWN
     Dates: start: 20090829
  14. SPIRONOLACTONE [Concomitant]
     Dosage: UNKNOWN
     Dates: start: 20090828, end: 20090828
  15. ZOFRAN [Concomitant]
     Dosage: UNKNOWN
     Dates: start: 20090826, end: 20090831
  16. FORTUM [Concomitant]
     Dosage: UNKNOWN
     Dates: start: 20090826
  17. KONAKION [Concomitant]
     Dosage: UNKNOWN
     Dates: start: 20090828, end: 20090830
  18. ACYCLOVIR [Concomitant]
     Dosage: UNKNOWN
     Dates: start: 20090826, end: 20090828
  19. LASIX [Concomitant]
     Dosage: UNKNOWN
     Dates: start: 20090829, end: 20090829
  20. ANIDULAFUNGIN [Suspect]
     Indication: ASPERGILLOSIS
     Route: 042
     Dates: start: 20090825, end: 20090825
  21. ANIDULAFUNGIN [Suspect]
     Route: 042
     Dates: start: 20090826, end: 20090828

REACTIONS (3)
  - HEPATIC FAILURE [None]
  - RENAL FAILURE [None]
  - RESPIRATORY FAILURE [None]
